FAERS Safety Report 14782230 (Version 4)
Quarter: 2018Q4

REPORT INFORMATION
  Report Type: Report from Study
  Country: None (occurrence: US)
  Receive Date: 20180420
  Receipt Date: 20181009
  Transmission Date: 20190204
  Serious: Yes (Hospitalization)
  Sender: FDA-Public Use
  Company Number: US-ABBVIE-18K-163-2320340-00

PATIENT
  Age: 61 Year
  Sex: Male
  Weight: 89.89 kg

DRUGS (7)
  1. AMLODIPINE [Concomitant]
     Active Substance: AMLODIPINE BESYLATE
     Indication: HYPERTENSION
  2. LEXAPRO [Concomitant]
     Active Substance: ESCITALOPRAM OXALATE
     Indication: DEPRESSION
  3. HUMIRA [Suspect]
     Active Substance: ADALIMUMAB
     Route: 058
     Dates: start: 201710, end: 2018
  4. FINASTERIDE. [Concomitant]
     Active Substance: FINASTERIDE
     Indication: PROSTATOMEGALY
  5. HUMIRA [Suspect]
     Active Substance: ADALIMUMAB
     Indication: CROHN^S DISEASE
     Route: 058
     Dates: start: 201703, end: 20170910
  6. HUMIRA [Suspect]
     Active Substance: ADALIMUMAB
     Route: 058
     Dates: start: 2018
  7. TRAZODONE [Concomitant]
     Active Substance: TRAZODONE HYDROCHLORIDE
     Indication: SLEEP DISORDER THERAPY

REACTIONS (10)
  - Spinal column stenosis [Recovered/Resolved]
  - Intervertebral disc degeneration [Recovered/Resolved]
  - Intervertebral discitis [Recovered/Resolved]
  - Flank pain [Recovered/Resolved]
  - Vertebral osteophyte [Recovered/Resolved]
  - Drug level decreased [Recovered/Resolved]
  - Inappropriate schedule of product administration [Unknown]
  - Intervertebral disc protrusion [Recovered/Resolved]
  - Drug ineffective [Recovered/Resolved]
  - Back pain [Recovering/Resolving]

NARRATIVE: CASE EVENT DATE: 2017
